FAERS Safety Report 5079359-0 (Version None)
Quarter: 2006Q3

REPORT INFORMATION
  Report Type: 
  Country: None (occurrence: None)
  Receive Date: 20060808
  Receipt Date: 20060728
  Transmission Date: 20061208
  Serious: Yes (Death)
  Sender: FDA-Public Use
  Company Number: 223765

PATIENT
  Age: 78 Year
  Sex: Male
  Weight: 49 kg

DRUGS (20)
  1. RITUXAN [Suspect]
     Indication: NON-HODGKIN'S LYMPHOMA
     Dosage: 600 MG, INTRAVENOUS
     Route: 042
     Dates: start: 20050714
  2. THERARUBICIN                    (PIRARUBICIN) [Suspect]
     Indication: NON-HODGKIN'S LYMPHOMA
     Dosage: 75 MG, INTRAVENOUS
     Route: 042
     Dates: start: 20050715
  3. CYCLOPHOSPHAMIDE [Suspect]
     Indication: NON-HODGKIN'S LYMPHOMA
     Dosage: 1100 MG, INTRAVENOUS
     Route: 042
     Dates: start: 20050715
  4. ONCOVIN [Suspect]
     Indication: NON-HODGKIN'S LYMPHOMA
     Dosage: 2 MG, INTRAVENOUS
     Route: 042
     Dates: start: 20050715
  5. PREDNISOLONE [Suspect]
     Indication: NON-HODGKIN'S LYMPHOMA
     Dosage: 100 MG, ORAL
     Route: 048
     Dates: start: 20050715
  6. ........................ [Concomitant]
  7. .......................... [Concomitant]
  8. ........................ [Concomitant]
  9. ......................... [Concomitant]
  10. GANCICLOVIR [Concomitant]
  11. FOSFLUCONAZOLE (FOSFLUCONAZOLE) [Concomitant]
  12. ACYCLOVIR SODIUM [Concomitant]
  13. INTERFERON BETA (INTERFERON BETA) [Concomitant]
  14. SAXIZON (HYDROCORTISONE SODIUM SUCCINATE) [Concomitant]
  15. DIAZEPAM [Concomitant]
  16. FAMOTIDINE [Concomitant]
  17. BACTRIM [Concomitant]
  18. DIFLUCAN [Concomitant]
  19. MAGNESIUM OXIDE (MAGNESIUM OXIDE) [Concomitant]
  20. PAXIL [Concomitant]

REACTIONS (2)
  - NECROTISING RETINITIS [None]
  - PNEUMONIA [None]
